FAERS Safety Report 6368131-7 (Version None)
Quarter: 2009Q3

REPORT INFORMATION
  Report Type: 
  Country: None (occurrence: None)
  Receive Date: 20090922
  Receipt Date: 20090914
  Transmission Date: 20100115
  Serious: Yes (Other)
  Sender: FDA-Public Use
  Company Number: US-AMGEN-KDL352526

PATIENT
  Sex: Male
  Weight: 84 kg

DRUGS (1)
  1. PROCRIT [Suspect]
     Indication: DIALYSIS
     Route: 042
     Dates: start: 20090101

REACTIONS (3)
  - DRUG INEFFECTIVE [None]
  - HAEMOLYTIC ANAEMIA [None]
  - SYSTEMIC LUPUS ERYTHEMATOSUS [None]
